FAERS Safety Report 9742529 (Version 1)
Quarter: 2013Q4

REPORT INFORMATION
  Report Type: Spontaneous
  Country: GB (occurrence: GB)
  Receive Date: 20131210
  Receipt Date: 20131210
  Transmission Date: 20140711
  Serious: Yes (Life-Threatening, Hospitalization)
  Sender: FDA-Public Use
  Company Number: PHFR2013GB007032

PATIENT
  Age: 41 Year
  Sex: Female

DRUGS (2)
  1. RIAMET [Suspect]
     Indication: PLASMODIUM FALCIPARUM INFECTION
     Dosage: UNK STANDARD DOSING
     Route: 048
     Dates: start: 20131111, end: 20131114
  2. AMLODIPINE [Concomitant]
     Dosage: UNK UKN, UNK

REACTIONS (1)
  - Haemolytic anaemia [Recovering/Resolving]
